FAERS Safety Report 4991358-3 (Version None)
Quarter: 2006Q2

REPORT INFORMATION
  Report Type: 
  Country: None (occurrence: None)
  Receive Date: 20060428
  Receipt Date: 20060411
  Transmission Date: 20061013
  Serious: Yes (Hospitalization)
  Sender: FDA-Public Use
  Company Number: US200604001950

PATIENT
  Age: 86 Year
  Sex: Male

DRUGS (10)
  1. HUMALOG MIX 75/25 [Suspect]
     Indication: DIABETES MELLITUS NON-INSULIN-DEPENDENT
     Dosage: 28 U/ML, EACH MORNING, 25 U EACH EVENINB=G
     Dates: start: 19880101
  2. HUMALOG MIX 75/25 [Suspect]
     Indication: DIABETES MELLITUS NON-INSULIN-DEPENDENT
     Dosage: 28 U/ML, EACH MORNING
     Dates: start: 20010101
  3. HUMALOG MIX 75/25 [Suspect]
  4. HUMALOG MIX 25L / 75NPL PEN (HUMALOG MIX 25L / 75NPL PEN)PEN,DISPOSABL [Concomitant]
  5. METOPROLOL SUCCINATE [Concomitant]
  6. COUMADIN [Concomitant]
  7. ZAROXYLN (METOLAZONE) [Concomitant]
  8. LACTIC ACID (LACTIC ACID) [Concomitant]
  9. VITAMIN B COMPLEX (BECOTIN) (VITAMIN B COMPLEX (BECOTIN) [Concomitant]
  10. IRO, VITAMIN B COMPLEX + VITAMIN C (IRON, VITAMIN B COMPLEX + VITAMIN [Concomitant]

REACTIONS (8)
  - ASTHENIA [None]
  - BLOOD GLUCOSE ABNORMAL [None]
  - CARPAL TUNNEL SYNDROME [None]
  - FATIGUE [None]
  - FEELING ABNORMAL [None]
  - PAIN IN EXTREMITY [None]
  - ROAD TRAFFIC ACCIDENT [None]
  - VISION BLURRED [None]
